FAERS Safety Report 10240003 (Version 1)
Quarter: 2014Q2

REPORT INFORMATION
  Report Type: Spontaneous
  Country: GB (occurrence: GB)
  Receive Date: 20140616
  Receipt Date: 20140616
  Transmission Date: 20141212
  Serious: Yes (Hospitalization)
  Sender: FDA-Public Use
  Company Number: GB-MYLANLABS-2014S1013253

PATIENT
  Sex: Male

DRUGS (4)
  1. FINASTERIDE [Suspect]
     Route: 048
  2. TAMSULOSIN [Concomitant]
  3. SIMVASTATIN [Concomitant]
  4. BISOPROLOL [Concomitant]

REACTIONS (2)
  - Swelling face [Unknown]
  - Peripheral swelling [Unknown]
